FAERS Safety Report 4477987-4 (Version None)
Quarter: 2004Q3

REPORT INFORMATION
  Report Type: 
  Country: None (occurrence: None)
  Receive Date: 20040923
  Receipt Date: 20040614
  Transmission Date: 20050211
  Serious: No
  Sender: FDA-Public Use
  Company Number: USA040670155

PATIENT
  Age: 75 Year
  Sex: Female

DRUGS (2)
  1. FORTEO [Suspect]
     Indication: OSTEOPOROSIS
     Dates: start: 20040514
  2. MEDICATION FOR CONSTIPATION [Concomitant]

REACTIONS (2)
  - CONSTIPATION [None]
  - MUSCULAR WEAKNESS [None]
